FAERS Safety Report 5306127-4 (Version None)
Quarter: 2007Q2

REPORT INFORMATION
  Report Type: 
  Country: None (occurrence: None)
  Receive Date: 20070424
  Receipt Date: 20070420
  Transmission Date: 20071010
  Serious: Yes (Hospitalization)
  Sender: FDA-Public Use
  Company Number: FR-BRISTOL-MYERS SQUIBB COMPANY-13757331

PATIENT
  Age: 65 Year
  Sex: Female

DRUGS (1)
  1. PRAVADUAL TABS 81 MG/40 MG [Suspect]
     Route: 048

REACTIONS (1)
  - PORTAL VEIN THROMBOSIS [None]
